FAERS Safety Report 5001783-2 (Version None)
Quarter: 2006Q2

REPORT INFORMATION
  Report Type: 
  Country: None (occurrence: None)
  Receive Date: 20060512
  Receipt Date: 20060512
  Transmission Date: 20061013
  Serious: Yes (Hospitalization)
  Sender: FDA-Public Use
  Company Number: None

PATIENT
  Sex: Male
  Weight: 104.7809 kg

DRUGS (2)
  1. TAXOTERE [Suspect]
     Indication: PROSTATE CANCER
     Dosage: 60 MG DAYS 1,8,15,Q 28 IV DRIP
     Route: 041
     Dates: start: 20060302, end: 20060427
  2. DOXIL [Suspect]
     Indication: PROSTATE CANCER
     Dosage: 60 MG DAY 1 Q 28 DAYS IV DRIP
     Route: 041
     Dates: start: 20060302, end: 20060427

REACTIONS (3)
  - BLOOD GLUCOSE INCREASED [None]
  - NAUSEA [None]
  - VOMITING [None]
